FAERS Safety Report 8429295-4 (Version None)
Quarter: 2012Q2

REPORT INFORMATION
  Report Type: 
  Country: None (occurrence: None)
  Receive Date: 20120612
  Receipt Date: 20120605
  Transmission Date: 20120825
  Serious: Yes (Other)
  Sender: FDA-Public Use
  Company Number: CA-ABBOTT-12P-028-0917379-00

PATIENT
  Sex: Female

DRUGS (2)
  1. HUMIRA [Suspect]
     Dates: start: 20120604
  2. HUMIRA [Suspect]
     Indication: RHEUMATOID ARTHRITIS
     Route: 058
     Dates: start: 20090223, end: 20120418

REACTIONS (1)
  - OSTEOARTHRITIS [None]
